FAERS Safety Report 5004608-4 (Version None)
Quarter: 2006Q2

REPORT INFORMATION
  Report Type: 
  Country: None (occurrence: None)
  Receive Date: 20060512
  Receipt Date: 20060502
  Transmission Date: 20061013
  Serious: Yes (Disabling, Other)
  Sender: FDA-Public Use
  Company Number: 2006059520

PATIENT
  Age: 34 Year
  Sex: Female
  Weight: 92.9874 kg

DRUGS (13)
  1. NEURONTIN [Suspect]
     Indication: NEURALGIA
     Dosage: 600 MG (300 MG, 2 IN 1 D)
  2. ALL OTHER THERAPEUTIC PRODUCTS (ALL OTHER THERAPEUTIC PRODUCTS) [Suspect]
     Indication: ILL-DEFINED DISORDER
  3. VICOPROFEN [Suspect]
     Indication: PAIN
     Dates: end: 20060101
  4. PROZAC [Suspect]
     Indication: DEPRESSION
     Dates: start: 19990101, end: 20060301
  5. ZOCOR [Concomitant]
  6. LEVOTHYROXINE SODIUM [Concomitant]
  7. LISINOPRIL [Concomitant]
  8. LORATADINE [Concomitant]
  9. GLIPIZIDE [Concomitant]
  10. PROPRANOLOL [Concomitant]
  11. ECOTRIN (ACETYLSALICYLIC ACID) [Concomitant]
  12. LIDOCAINE [Concomitant]
  13. ANTIDEPRESSANTS (ANTIDEPRESSANTS) [Concomitant]

REACTIONS (8)
  - CHRONIC FATIGUE SYNDROME [None]
  - COMPLEX REGIONAL PAIN SYNDROME [None]
  - CONDITION AGGRAVATED [None]
  - DEPRESSION [None]
  - FIBROMYALGIA [None]
  - HALLUCINATION [None]
  - SOMNOLENCE [None]
  - THERAPY NON-RESPONDER [None]
